FAERS Safety Report 7213507-9 (Version None)
Quarter: 2011Q1

REPORT INFORMATION
  Report Type: 
  Country: None (occurrence: None)
  Receive Date: 20110106
  Receipt Date: 20110103
  Transmission Date: 20110831
  Serious: Yes (Other)
  Sender: FDA-Public Use
  Company Number: SE-JNJFOC-20110100580

PATIENT
  Sex: Female

DRUGS (3)
  1. IPREN [Suspect]
     Indication: NECK PAIN
     Route: 048
  2. IPREN [Suspect]
     Indication: DYSMENORRHOEA
     Route: 048
  3. IPREN [Suspect]
     Indication: HEADACHE
     Route: 048

REACTIONS (2)
  - DEPENDENCE [None]
  - OVERDOSE [None]
